FAERS Safety Report 11427935 (Version 1)
Quarter: 2020Q3

REPORT INFORMATION
  Report Type: Spontaneous
  Country: US (occurrence: US)
  Receive Date: 20150828
  Receipt Date: 20150828
  Transmission Date: 20201104
  Serious: Yes (Other)
  Sender: FDA-Public Use
  Company Number: US-CIPLA LTD.-2015US06790

PATIENT

DRUGS (6)
  1. FLUOROURACIL. [Suspect]
     Active Substance: FLUOROURACIL
     Indication: GASTROINTESTINAL CARCINOMA
     Dosage: 400 MG/M2 ,FOLLOWED BY 2400 MG/M2 OVER 46 H, ON DAYS 1 AND 15 OF OF 28? DAY CYCLE
  2. LEUCOVORIN. [Suspect]
     Active Substance: LEUCOVORIN
     Indication: GASTROINTESTINAL CARCINOMA
     Dosage: 400 MG/M2, OVER 2 H, ON DAYS 1 AND 15 OF OF 28? DAY CYCLE
     Route: 042
  3. PASIREOTIDE. [Suspect]
     Active Substance: PASIREOTIDE
     Indication: GASTROINTESTINAL CARCINOMA
     Dosage: ONCE EVERY 28 DAYS, 40 (STARTING DOSE LEVEL), 60, 80, 100 AND 120 MG.
     Route: 030
  4. ONDANSETRON [Suspect]
     Active Substance: ONDANSETRON
     Indication: PROPHYLAXIS OF NAUSEA AND VOMITING
     Dosage: 16 MG, UNK
     Route: 048
  5. DEXAMETHASONE. [Suspect]
     Active Substance: DEXAMETHASONE
     Indication: PROPHYLAXIS OF NAUSEA AND VOMITING
     Dosage: 18 MG, UNK
     Route: 048
  6. IRINOTECAN [Suspect]
     Active Substance: IRINOTECAN
     Indication: GASTROINTESTINAL CARCINOMA
     Dosage: 180 MG/M2, OVER 90 MIN ,ON DAYS 1 AND 15 OF OF 28? DAY CYCLE
     Route: 042

REACTIONS (1)
  - Peripheral sensory neuropathy [Unknown]
